FAERS Safety Report 6825466-9 (Version None)
Quarter: 2010Q3

REPORT INFORMATION
  Report Type: 
  Country: None (occurrence: None)
  Receive Date: 20100708
  Receipt Date: 20061228
  Transmission Date: 20110219
  Serious: No
  Sender: FDA-Public Use
  Company Number: US-PFIZER INC-2006142983

PATIENT
  Age: 59 Year
  Sex: Male
  Weight: 99.79 kg

DRUGS (3)
  1. CHANTIX [Suspect]
     Indication: EX-TOBACCO USER
     Route: 048
     Dates: start: 20061114
  2. DIURETICS [Concomitant]
     Route: 048
  3. POTASSIUM CHLORIDE [Concomitant]
     Route: 048

REACTIONS (2)
  - DYSGEUSIA [None]
  - PAROSMIA [None]
